FAERS Safety Report 4397820-9 (Version None)
Quarter: 2004Q2

REPORT INFORMATION
  Report Type: 
  Country: None (occurrence: None)
  Receive Date: 20040621
  Receipt Date: 20040304
  Transmission Date: 20050107
  Serious: Yes (Hospitalization, Other)
  Sender: FDA-Public Use
  Company Number: USA-2004-0013573

PATIENT
  Age: 31 Year
  Sex: Male

DRUGS (4)
  1. OXYCONTIN [Suspect]
     Dosage: 80 MG
  2. MUSCLE RELAXANTS [Suspect]
     Indication: METASTATIC NEOPLASM
  3. VICODIN [Concomitant]
  4. .. [Concomitant]

REACTIONS (4)
  - CONVULSION [None]
  - DRUG ABUSER [None]
  - DRUG DEPENDENCE [None]
  - MULTIPLE DRUG OVERDOSE [None]
